FAERS Safety Report 6100822-5 (Version None)
Quarter: 2009Q1

REPORT INFORMATION
  Report Type: 
  Country: None (occurrence: None)
  Receive Date: 20090303
  Receipt Date: 20090220
  Transmission Date: 20090719
  Serious: Yes (Hospitalization)
  Sender: FDA-Public Use
  Company Number: US-JNJCH-2009000650

PATIENT
  Age: 62 Year
  Sex: Female
  Weight: 125.6 kg

DRUGS (1)
  1. ROLAIDS EXTRA STRENGTH TROPICAL PUNCH [Suspect]
     Indication: DYSPEPSIA
     Dosage: TEXT:UNSPECIFIED
     Route: 048

REACTIONS (4)
  - ABDOMINAL DISCOMFORT [None]
  - DYSGEUSIA [None]
  - MALAISE [None]
  - VOMITING [None]
